FAERS Safety Report 9379065 (Version 2)
Quarter: 2013Q2

REPORT INFORMATION
  Report Type: Spontaneous
  Country: US (occurrence: None)
  Receive Date: 20130503
  Receipt Date: 20130513
  Transmission Date: 20140414
  Serious: Yes (Death)
  Sender: FDA-Public Use
  Company Number: 2013-US-0149

PATIENT
  Age: 70 Year
  Sex: Male

DRUGS (1)
  1. SANCUSO [Suspect]
     Indication: PRODUCT USED FOR UNKNOWN INDICATION
     Dosage: MONTHLY WHILE ON TREATMENT
     Route: 062

REACTIONS (2)
  - Death [None]
  - Prostate cancer metastatic [None]
